FAERS Safety Report 6238363-7 (Version None)
Quarter: 2009Q2

REPORT INFORMATION
  Report Type: 
  Country: None (occurrence: None)
  Receive Date: 20090622
  Receipt Date: 20090612
  Transmission Date: 20091009
  Serious: Yes (Hospitalization)
  Sender: FDA-Public Use
  Company Number: US-BIOGENIDEC-2007BI010816

PATIENT
  Age: 20 Year
  Sex: Female
  Weight: 56 kg

DRUGS (4)
  1. AVONEX [Suspect]
     Indication: MULTIPLE SCLEROSIS
     Route: 030
     Dates: start: 20000101, end: 20030101
  2. AVONEX [Suspect]
     Route: 030
     Dates: start: 20030101, end: 20050101
  3. AVONEX [Suspect]
     Route: 030
     Dates: start: 20050103, end: 20050704
  4. AVONEX [Suspect]
     Route: 030
     Dates: start: 20061201

REACTIONS (4)
  - FACE INJURY [None]
  - JOINT INJURY [None]
  - PAIN [None]
  - ROAD TRAFFIC ACCIDENT [None]
